FAERS Safety Report 4375036-X (Version None)
Quarter: 2004Q2

REPORT INFORMATION
  Report Type: 
  Country: None (occurrence: None)
  Receive Date: 20040604
  Receipt Date: 20040525
  Transmission Date: 20050107
  Serious: Yes (Hospitalization)
  Sender: FDA-Public Use
  Company Number: HQWYE113426MAY04

PATIENT
  Age: 2 Year
  Sex: Male

DRUGS (8)
  1. CHILDREN'S ADVIL [Suspect]
     Indication: PHARYNGITIS
     Dosage: UNKNOWN; ORAL
     Route: 048
     Dates: start: 20040427, end: 20040427
  2. CHILDREN'S ADVIL [Suspect]
     Indication: RHINITIS
     Dosage: UNKNOWN; ORAL
     Route: 048
     Dates: start: 20040427, end: 20040427
  3. ACETAMINOPHEN [Suspect]
     Indication: PHARYNGITIS
     Dosage: UNKNOWN; ORAL
     Route: 048
     Dates: start: 20040426
  4. ACETAMINOPHEN [Suspect]
     Indication: RHINITIS
     Dosage: UNKNOWN; ORAL
     Route: 048
     Dates: start: 20040426
  5. MAXILASE (AMYLASE, ) [Suspect]
     Indication: PHARYNGITIS
     Dosage: UNKNOWN; ORAL
     Route: 048
     Dates: start: 20040426
  6. MAXILASE (AMYLASE, ) [Suspect]
     Indication: RHINITIS
     Dosage: UNKNOWN; ORAL
     Route: 048
     Dates: start: 20040426
  7. MUCOMYST [Suspect]
     Indication: PHARYNGITIS
     Dosage: UNKNOWN; UNKNOWN
     Route: 065
     Dates: start: 20040426
  8. MUCOMYST [Suspect]
     Indication: RHINITIS
     Dosage: UNKNOWN; UNKNOWN
     Route: 065
     Dates: start: 20040426

REACTIONS (3)
  - CELLULITIS [None]
  - LYMPHADENOPATHY [None]
  - RETROPHARYNGEAL ABSCESS [None]
